FAERS Safety Report 21963107 (Version 1)
Quarter: 2023Q1

REPORT INFORMATION
  Report Type: Spontaneous
  Country: US (occurrence: None)
  Receive Date: 20230205
  Receipt Date: 20230205
  Transmission Date: 20230417
  Serious: No
  Sender: FDA-Public Use
  Company Number: None

PATIENT
  Age: 76 Year
  Sex: Male
  Weight: 70.2 kg

DRUGS (8)
  1. TRULICITY [Suspect]
     Active Substance: DULAGLUTIDE
     Indication: Blood glucose increased
     Dates: start: 20221101, end: 20230109
  2. METFORMIN [Concomitant]
     Active Substance: METFORMIN HYDROCHLORIDE
  3. GLIPIZIDE [Concomitant]
     Active Substance: GLIPIZIDE
  4. meteprolol [Concomitant]
  5. AMLODIPINE BESYLATE [Concomitant]
     Active Substance: AMLODIPINE BESYLATE
  6. FINASTERIDE [Concomitant]
     Active Substance: FINASTERIDE
  7. JANUVIA [Concomitant]
     Active Substance: SITAGLIPTIN PHOSPHATE
  8. ATORVASTATIN [Concomitant]
     Active Substance: ATORVASTATIN

REACTIONS (17)
  - Blood glucose increased [None]
  - Blood pressure increased [None]
  - Heart rate increased [None]
  - Anxiety [None]
  - New daily persistent headache [None]
  - Decreased appetite [None]
  - Ageusia [None]
  - Feeding disorder [None]
  - Weight decreased [None]
  - Nausea [None]
  - Vomiting [None]
  - Therapy change [None]
  - Parosmia [None]
  - Palpitations [None]
  - Cognitive disorder [None]
  - Memory impairment [None]
  - Therapy cessation [None]
